FAERS Safety Report 25645924 (Version 3)
Quarter: 2025Q4

REPORT INFORMATION
  Report Type: Spontaneous
  Country: US (occurrence: US)
  Receive Date: 20250805
  Receipt Date: 20251110
  Transmission Date: 20260117
  Serious: Yes (Hospitalization, Other)
  Sender: BAYER HEALTHCARE PHARMACEUTICALS INC.
  Company Number: US-BAYER-2025A102773

PATIENT
  Age: 13 Year
  Sex: Male

DRUGS (4)
  1. KOVALTRY [Suspect]
     Active Substance: ANTIHEMOPHILIC FACTOR, HUMAN RECOMBINANT
     Indication: Factor VIII deficiency
     Dosage: KOVALTRY 20000/ 2500 IU, PRN
     Route: 042
     Dates: start: 202201
  2. KOVALTRY [Suspect]
     Active Substance: ANTIHEMOPHILIC FACTOR, HUMAN RECOMBINANT
     Indication: Factor VIII deficiency
     Dosage: 2 DF
  3. KOVALTRY [Suspect]
     Active Substance: ANTIHEMOPHILIC FACTOR, HUMAN RECOMBINANT
     Indication: Factor VIII deficiency
     Dosage: BLEEDING CONTROLLED WITH KOVALTRY
     Route: 042
  4. HEMLIBRA [Concomitant]
     Active Substance: EMICIZUMAB-KXWH

REACTIONS (3)
  - Testicular torsion [Recovered/Resolved]
  - Incision site complication [Recovered/Resolved]
  - Procedural haemorrhage [Recovered/Resolved]

NARRATIVE: CASE EVENT DATE: 20250626
